FAERS Safety Report 24426017 (Version 1)
Quarter: 2024Q4

REPORT INFORMATION
  Report Type: Spontaneous
  Country: BR (occurrence: BR)
  Receive Date: 20241011
  Receipt Date: 20241011
  Transmission Date: 20250115
  Serious: Yes (Other)
  Sender: ORGANON
  Company Number: BR-ORGANON-O2410BRA000770

PATIENT
  Sex: Female

DRUGS (1)
  1. ETONOGESTREL [Interacting]
     Active Substance: ETONOGESTREL
     Dosage: 1 IMPLANT
     Route: 059

REACTIONS (3)
  - Pregnancy with implant contraceptive [Unknown]
  - Unintended pregnancy [Unknown]
  - Drug interaction [Unknown]
